FAERS Safety Report 9405221 (Version 1)
Quarter: 2013Q3

REPORT INFORMATION
  Report Type: Spontaneous
  Country: DE (occurrence: DE)
  Receive Date: 20130717
  Receipt Date: 20130717
  Transmission Date: 20140515
  Serious: Yes (Congenital Anomaly, Other)
  Sender: FDA-Public Use
  Company Number: PHHY2013DE074983

PATIENT
  Sex: 0

DRUGS (4)
  1. ALLOPURINOL [Suspect]
     Indication: GOUT
     Dosage: 300 MG, QD
     Route: 064
  2. FUROSEMIDE [Suspect]
  3. PRAVASTATIN [Suspect]
     Route: 064
  4. CERIVASTATIN [Suspect]
     Route: 064

REACTIONS (2)
  - Haemangioma [Unknown]
  - Foetal exposure during pregnancy [Unknown]
